FAERS Safety Report 7086977-7 (Version None)
Quarter: 2010Q4

REPORT INFORMATION
  Report Type: 
  Country: None (occurrence: None)
  Receive Date: 20101106
  Receipt Date: 20101007
  Transmission Date: 20110411
  Serious: No
  Sender: FDA-Public Use
  Company Number: US-WYE-H18140710

PATIENT
  Sex: Female

DRUGS (2)
  1. PREMARIN [Suspect]
     Dosage: UNKNOWN
     Route: 048
  2. PREMARIN [Suspect]
     Dosage: UNKNOWN DOSE TAKEN EVERY OTHER DAY FOR 2 WEEKS
     Route: 048

REACTIONS (1)
  - HEADACHE [None]
